FAERS Safety Report 13361522 (Version 1)
Quarter: 2017Q1

REPORT INFORMATION
  Report Type: Spontaneous
  Country: US (occurrence: US)
  Receive Date: 20170323
  Receipt Date: 20170323
  Transmission Date: 20170429
  Serious: No
  Sender: FDA-Public Use
  Company Number: US-TEVA-747811ACC

PATIENT
  Sex: Female

DRUGS (8)
  1. GABAPENTIN. [Concomitant]
     Active Substance: GABAPENTIN
  2. COPAXONE [Suspect]
     Active Substance: GLATIRAMER ACETATE
     Indication: MULTIPLE SCLEROSIS
     Route: 058
     Dates: start: 20160223
  3. ESOMEPRA MAG CAPSULE [Concomitant]
  4. DULOXETINE. [Concomitant]
     Active Substance: DULOXETINE
  5. PREVIDENT 5000 [Concomitant]
  6. VALSARTAN AND HYDROCHLOROTHIAZIDE [Concomitant]
     Active Substance: HYDROCHLOROTHIAZIDE\VALSARTAN
  7. CLONAZEPAM. [Concomitant]
     Active Substance: CLONAZEPAM
  8. BACLOFEN. [Concomitant]
     Active Substance: BACLOFEN

REACTIONS (1)
  - Injection site pruritus [Not Recovered/Not Resolved]
